FAERS Safety Report 8824560 (Version 1)
Quarter: 2012Q4

REPORT INFORMATION
  Report Type: Report from Study
  Country: US (occurrence: US)
  Receive Date: 20121004
  Receipt Date: 20121004
  Transmission Date: 20130627
  Serious: Yes (Other)
  Sender: FDA-Public Use
  Company Number: US-JNJFOC-20120910734

PATIENT
  Age: 56 None
  Sex: Female
  Weight: 108.86 kg

DRUGS (20)
  1. XARELTO [Suspect]
     Indication: CEREBROVASCULAR ACCIDENT PROPHYLAXIS
     Route: 048
     Dates: start: 20120405, end: 201209
  2. XARELTO [Suspect]
     Indication: CEREBROVASCULAR ACCIDENT PROPHYLAXIS
     Route: 048
     Dates: start: 201209, end: 20120922
  3. XARELTO [Suspect]
     Indication: ATRIAL FIBRILLATION
     Route: 048
     Dates: start: 201209, end: 20120922
  4. XARELTO [Suspect]
     Indication: ATRIAL FIBRILLATION
     Route: 048
     Dates: start: 20120405, end: 201209
  5. ASPIRIN [Suspect]
     Indication: ATRIAL FIBRILLATION
     Route: 048
     Dates: start: 201209, end: 201209
  6. ASPIRIN [Suspect]
     Indication: ATRIAL FIBRILLATION
     Route: 048
     Dates: start: 20120922
  7. TYLENOL ARTHRITIS [Concomitant]
     Route: 048
  8. PREVACID [Concomitant]
  9. DIGOXIN [Concomitant]
     Indication: CARDIOVASCULAR EVENT PROPHYLAXIS
     Route: 048
  10. LOSARTAN [Concomitant]
     Indication: BLOOD PRESSURE
     Route: 048
  11. FISH OIL [Concomitant]
     Indication: VITAMIN SUPPLEMENTATION
     Route: 048
  12. CALCIUM [Concomitant]
     Indication: VITAMIN SUPPLEMENTATION
     Route: 048
  13. VITAMIN D [Concomitant]
     Indication: VITAMIN SUPPLEMENTATION
     Dosage: every other day
     Route: 048
  14. MAGNESIUM [Concomitant]
     Indication: VITAMIN SUPPLEMENTATION
     Route: 048
  15. MULTIPLE VITAMINS [Concomitant]
     Indication: VITAMIN SUPPLEMENTATION
     Route: 048
  16. CARDIAC THERAPY [Concomitant]
  17. ZINC [Concomitant]
     Indication: NUTRITIONAL SUPPORT
     Route: 048
  18. E VITAMIN [Concomitant]
     Indication: NUTRITIONAL SUPPORT
     Route: 048
  19. GLUCOSAMINE [Concomitant]
     Indication: NUTRITIONAL SUPPORT
     Route: 048
  20. MOBIC [Concomitant]
     Route: 048

REACTIONS (2)
  - Neuropathy peripheral [Recovering/Resolving]
  - Insomnia [Recovered/Resolved]
